FAERS Safety Report 7784621-4 (Version None)
Quarter: 2011Q3

REPORT INFORMATION
  Report Type: 
  Country: None (occurrence: None)
  Receive Date: 20110928
  Receipt Date: 20110915
  Transmission Date: 20111222
  Serious: Yes (Other)
  Sender: FDA-Public Use
  Company Number: CZ-MYLANLABS-2011S1019767

PATIENT
  Age: 83 Year
  Sex: Female

DRUGS (2)
  1. NORFLOXACIN [Interacting]
     Indication: URINARY TRACT INFECTION
     Route: 065
  2. TAMOXIFEN CITRATE [Suspect]
     Indication: MENINGIOMA
     Dosage: 20 MG/DAY
     Route: 065

REACTIONS (3)
  - DRUG INTERACTION [None]
  - ELECTROCARDIOGRAM QT PROLONGED [None]
  - SINUS BRADYCARDIA [None]
